FAERS Safety Report 6197366-1 (Version None)
Quarter: 2009Q2

REPORT INFORMATION
  Report Type: 
  Country: None (occurrence: None)
  Receive Date: 20090518
  Receipt Date: 20090507
  Transmission Date: 20091009
  Serious: Yes (Hospitalization, Other)
  Sender: FDA-Public Use
  Company Number: 2009US000515

PATIENT
  Age: 1 Year
  Sex: Female

DRUGS (11)
  1. PROGRAF [Suspect]
     Indication: HEART TRANSPLANT
     Dosage: UNK; 1.8 MG, BID; 1.5 MG, BID
     Dates: end: 20081215
  2. PROGRAF [Suspect]
     Indication: HEART TRANSPLANT
     Dosage: UNK; 1.8 MG, BID; 1.5 MG, BID
     Dates: start: 20081216, end: 20090107
  3. PROGRAF [Suspect]
     Indication: HEART TRANSPLANT
     Dosage: UNK; 1.8 MG, BID; 1.5 MG, BID
     Dates: start: 20080101
  4. CELLCEPT [Concomitant]
  5. FERROUS SULFATE TAB [Concomitant]
  6. PREVACID [Concomitant]
  7. MULTIVITAMIN [Concomitant]
  8. PRILOSEC [Concomitant]
  9. PRAVACHOL [Concomitant]
  10. BICITRA (SODIUM CITRATE ACID) [Concomitant]
  11. KAYEXALATE [Concomitant]

REACTIONS (20)
  - ANAEMIA [None]
  - ANTIBODY TEST POSITIVE [None]
  - AUTOIMMUNE NEUTROPENIA [None]
  - BLOOD CULTURE POSITIVE [None]
  - CARDIOMEGALY [None]
  - CATHETER SITE HAEMORRHAGE [None]
  - DEHYDRATION [None]
  - GASTROENTERITIS VIRAL [None]
  - GASTROOESOPHAGEAL REFLUX DISEASE [None]
  - GINGIVAL HYPERPLASIA [None]
  - HYPERKALAEMIA [None]
  - HYPERTENSION [None]
  - HYPOPHAGIA [None]
  - PYREXIA [None]
  - RED MAN SYNDROME [None]
  - RENAL FAILURE CHRONIC [None]
  - STAPHYLOCOCCAL INFECTION [None]
  - STOMATITIS [None]
  - TRICUSPID VALVE INCOMPETENCE [None]
  - VIRAL INFECTION [None]
